FAERS Safety Report 5429012-6 (Version None)
Quarter: 2007Q3

REPORT INFORMATION
  Report Type: 
  Country: None (occurrence: None)
  Receive Date: 20070829
  Receipt Date: 20060922
  Transmission Date: 20080115
  Serious: No
  Sender: FDA-Public Use
  Company Number: A0621201A

PATIENT
  Sex: Female

DRUGS (1)
  1. MALARONE [Suspect]
     Dates: start: 20060601, end: 20060601

REACTIONS (1)
  - MALAISE [None]
